FAERS Safety Report 14773649 (Version 7)
Quarter: 2018Q3

REPORT INFORMATION
  Report Type: Spontaneous
  Country: DK (occurrence: DK)
  Receive Date: 20180418
  Receipt Date: 20180727
  Transmission Date: 20181010
  Serious: Yes (Death, Hospitalization)
  Sender: FDA-Public Use
  Company Number: DK-ROCHE-2106614

PATIENT
  Age: 69 Year
  Sex: Male

DRUGS (22)
  1. CYCLOPHOSPHAMIDE. [Suspect]
     Active Substance: CYCLOPHOSPHAMIDE
     Dosage: RECEIVED FOR SIX TIMES
     Route: 065
     Dates: start: 201008
  2. CYCLOPHOSPHAMIDE. [Suspect]
     Active Substance: CYCLOPHOSPHAMIDE
     Indication: B-CELL LYMPHOMA
     Dosage: RECEIVED TWO TREATMENTS
     Route: 065
     Dates: start: 201001
  3. VINCRISTINE [Suspect]
     Active Substance: VINCRISTINE
     Indication: B-CELL LYMPHOMA
     Dosage: RECEIVED TWO TREATMENTS
     Route: 065
     Dates: start: 201001
  4. RITUXIMAB. [Suspect]
     Active Substance: RITUXIMAB
     Route: 048
     Dates: start: 2004, end: 2009
  5. PREDNISOLONE. [Suspect]
     Active Substance: PREDNISOLONE
     Indication: B-CELL LYMPHOMA
     Dosage: RECEIVED SIX SERIES
     Route: 065
     Dates: start: 201102
  6. CLINDAMYCIN. [Concomitant]
     Active Substance: CLINDAMYCIN
     Indication: TOXOPLASMOSIS
     Route: 065
  7. RITUXIMAB. [Suspect]
     Active Substance: RITUXIMAB
     Indication: B-CELL LYMPHOMA
     Dosage: MAINTENANCE THERAPY EVERY THREE MONTHS
     Route: 048
  8. CYCLOPHOSPHAMIDE. [Suspect]
     Active Substance: CYCLOPHOSPHAMIDE
     Route: 048
     Dates: start: 2004, end: 2009
  9. PREDNISOLONE. [Suspect]
     Active Substance: PREDNISOLONE
     Dosage: RECEIVED TWO TREATMENTS
     Route: 065
     Dates: start: 201001
  10. FLUDARABINE PHOSPHATE. [Suspect]
     Active Substance: FLUDARABINE PHOSPHATE
     Indication: B-CELL LYMPHOMA
     Route: 065
     Dates: start: 201008
  11. CYCLOPHOSPHAMIDE. [Suspect]
     Active Substance: CYCLOPHOSPHAMIDE
     Dosage: RECEIVED SIX SERIES
     Route: 065
     Dates: start: 201102
  12. PREDNISONE. [Suspect]
     Active Substance: PREDNISONE
     Indication: B-CELL LYMPHOMA
     Dosage: UNK
     Route: 065
  13. CHLORAMBUCIL [Suspect]
     Active Substance: CHLORAMBUCIL
     Indication: B-CELL LYMPHOMA
     Route: 048
     Dates: start: 2004, end: 2009
  14. VINCRISTINE [Suspect]
     Active Substance: VINCRISTINE
     Dosage: RECEIVED SIX SERIES
     Route: 065
     Dates: start: 201102
  15. RITUXIMAB. [Suspect]
     Active Substance: RITUXIMAB
     Dosage: RECEIVED FOR SIX TIMES
     Route: 065
     Dates: start: 201008
  16. CHLORAMBUCIL [Suspect]
     Active Substance: CHLORAMBUCIL
     Indication: B-CELL LYMPHOMA
  17. VORICONAZOLE. [Suspect]
     Active Substance: VORICONAZOLE
     Indication: ASPERGILLOMA
     Route: 065
  18. DOXORUBICIN [Suspect]
     Active Substance: DOXORUBICIN
     Indication: PRODUCT USED FOR UNKNOWN INDICATION
     Dosage: TREATED WITH SIX SERIES
     Route: 065
     Dates: start: 201102
  19. PYRIMETHAMINE [Concomitant]
     Active Substance: PYRIMETHAMINE
     Indication: TOXOPLASMOSIS
     Route: 065
  20. RITUXIMAB. [Suspect]
     Active Substance: RITUXIMAB
     Dosage: TREATED WITH SIX SERIES
     Route: 065
     Dates: start: 201102
  21. RITUXIMAB. [Suspect]
     Active Substance: RITUXIMAB
     Dosage: RECEIVED TWO TREATMENTS
     Route: 065
     Dates: start: 201001
  22. DAPSONE. [Concomitant]
     Active Substance: DAPSONE
     Indication: PROPHYLAXIS
     Dosage: 100 MG, QD
     Route: 065
     Dates: start: 2012

REACTIONS (9)
  - Confusional state [Fatal]
  - Aphasia [Fatal]
  - Lung infiltration [Recovered/Resolved]
  - Pyrexia [Recovered/Resolved]
  - Cough [Recovered/Resolved]
  - Cerebral aspergillosis [Fatal]
  - Apraxia [Fatal]
  - Drug ineffective [Fatal]
  - Pneumocystis jirovecii pneumonia [Recovered/Resolved]

NARRATIVE: CASE EVENT DATE: 201205
